FAERS Safety Report 7813409-0 (Version None)
Quarter: 2011Q4

REPORT INFORMATION
  Report Type: 
  Country: None (occurrence: None)
  Receive Date: 20111014
  Receipt Date: 20110929
  Transmission Date: 20120403
  Serious: Yes (Death, Hospitalization, Other)
  Sender: FDA-Public Use
  Company Number: FR-BIOGENIDEC-2011BI002412

PATIENT
  Age: 36 Year
  Sex: Male

DRUGS (3)
  1. PAROXETINE HCL [Concomitant]
  2. TYSABRI [Suspect]
     Indication: MULTIPLE SCLEROSIS
     Route: 042
     Dates: start: 20080410, end: 20101201
  3. CLORAZEPATE DIPOTASSIUM [Concomitant]

REACTIONS (6)
  - DEPRESSION [None]
  - ASPIRATION [None]
  - PAIN [None]
  - DEATH [None]
  - PROGRESSIVE MULTIFOCAL LEUKOENCEPHALOPATHY [None]
  - IMMUNE RECONSTITUTION SYNDROME [None]
